FAERS Safety Report 18175672 (Version 1)
Quarter: 2020Q3

REPORT INFORMATION
  Report Type: Spontaneous
  Country: IT (occurrence: IT)
  Receive Date: 20200820
  Receipt Date: 20200820
  Transmission Date: 20201103
  Serious: Yes (Other)
  Sender: FDA-Public Use
  Company Number: IT-009507513-2008ITA008829

PATIENT
  Age: 42 Year
  Sex: Female
  Weight: 114 kg

DRUGS (2)
  1. PEMBROLIZUMAB. [Suspect]
     Active Substance: PEMBROLIZUMAB
     Dosage: 200 MG, EVERY 3 WEEKS
     Route: 042
  2. PEMBROLIZUMAB. [Suspect]
     Active Substance: PEMBROLIZUMAB
     Indication: MALIGNANT MELANOMA STAGE III
     Dosage: 200 MILLIGRAM, EVERY 3 WEEKS, , 7 CYCLES
     Route: 042
     Dates: start: 20200331, end: 20200812

REACTIONS (2)
  - Pulmonary toxicity [Unknown]
  - Immune-mediated pneumonitis [Not Recovered/Not Resolved]

NARRATIVE: CASE EVENT DATE: 202008
